FAERS Safety Report 5359284-8 (Version None)
Quarter: 2007Q2

REPORT INFORMATION
  Report Type: 
  Country: None (occurrence: None)
  Receive Date: 20070530
  Receipt Date: 20070315
  Transmission Date: 20071010
  Serious: No
  Sender: FDA-Public Use
  Company Number: 2007PV031796

PATIENT
  Age: 68 Year
  Sex: Male

DRUGS (5)
  1. BYETTA [Suspect]
     Indication: DIABETES MELLITUS NON-INSULIN-DEPENDENT
     Dosage: SEE IMAGE
     Route: 058
     Dates: start: 20070306, end: 20070313
  2. BYETTA [Suspect]
     Indication: DIABETES MELLITUS NON-INSULIN-DEPENDENT
     Dosage: SEE IMAGE
     Route: 058
     Dates: start: 20070314
  3. ACTOS [Suspect]
     Dosage: SEE IMAGE
     Route: 048
     Dates: start: 20070101, end: 20070101
  4. ACTOS [Suspect]
     Dosage: SEE IMAGE
     Route: 048
     Dates: start: 20070101, end: 20070201
  5. GLIPIZIDE [Concomitant]

REACTIONS (4)
  - BLOOD GLUCOSE INCREASED [None]
  - GENERALISED OEDEMA [None]
  - HYPERHIDROSIS [None]
  - INJECTION SITE PAIN [None]
